FAERS Safety Report 8079712-7 (Version None)
Quarter: 2012Q1

REPORT INFORMATION
  Report Type: 
  Country: None (occurrence: None)
  Receive Date: 20120128
  Receipt Date: 20110721
  Transmission Date: 20120608
  Serious: No
  Sender: FDA-Public Use
  Company Number: US-ABBOTT-11P-163-0841024-00

PATIENT
  Age: 44 Year
  Sex: Female

DRUGS (4)
  1. LOESTRIN 1.5/30 [Concomitant]
     Indication: ENDOMETRIOSIS
     Route: 048
     Dates: start: 20090101
  2. IMPLANON [Concomitant]
     Indication: ENDOMETRIOSIS
     Route: 048
     Dates: start: 20090101
  3. SAVELLA [Concomitant]
     Indication: FIBROMYALGIA
     Route: 048
  4. HUMIRA [Suspect]
     Indication: PSORIASIS
     Dates: start: 20110501

REACTIONS (8)
  - PAIN IN EXTREMITY [None]
  - CONTUSION [None]
  - NERVE COMPRESSION [None]
  - ARTHRALGIA [None]
  - OEDEMA PERIPHERAL [None]
  - INJECTION SITE PAIN [None]
  - FALL [None]
  - GLAUCOMA [None]
